FAERS Safety Report 8351596-9 (Version None)
Quarter: 2012Q2

REPORT INFORMATION
  Report Type: 
  Country: None (occurrence: None)
  Receive Date: 20120511
  Receipt Date: 20120501
  Transmission Date: 20120825
  Serious: No
  Sender: FDA-Public Use
  Company Number: US-BIOGENIDEC-2010BI032021

PATIENT
  Sex: Female

DRUGS (2)
  1. TYSABRI [Suspect]
     Route: 042
  2. TYSABRI [Suspect]
     Indication: MULTIPLE SCLEROSIS
     Route: 042
     Dates: start: 20091110

REACTIONS (13)
  - TOOTHACHE [None]
  - PNEUMONIA [None]
  - GASTROOESOPHAGEAL REFLUX DISEASE [None]
  - TOOTH DISORDER [None]
  - CHEST DISCOMFORT [None]
  - ARTHRALGIA [None]
  - RASH [None]
  - MULTIPLE SCLEROSIS RELAPSE [None]
  - CHEST PAIN [None]
  - ABDOMINAL DISCOMFORT [None]
  - PRURITUS [None]
  - PNEUMOTHORAX [None]
  - OESOPHAGEAL IRRITATION [None]
